FAERS Safety Report 21699540 (Version 1)
Quarter: 2022Q4

REPORT INFORMATION
  Report Type: Spontaneous
  Country: CA (occurrence: CA)
  Receive Date: 20221208
  Receipt Date: 20221208
  Transmission Date: 20230112
  Serious: Yes (Other)
  Sender: FDA-Public Use
  Company Number: CA-BAYER-2022P026961

PATIENT
  Age: 45 Year
  Sex: Female

DRUGS (1)
  1. YAZ [Suspect]
     Active Substance: DROSPIRENONE\ETHINYL ESTRADIOL
     Indication: Endometriosis
     Dosage: UNK
     Dates: start: 20080206, end: 20101220

REACTIONS (3)
  - Deep vein thrombosis [None]
  - Thrombosis [None]
  - Peripheral artery occlusion [Recovered/Resolved]
